FAERS Safety Report 7473043-1 (Version None)
Quarter: 2011Q2

REPORT INFORMATION
  Report Type: 
  Country: None (occurrence: None)
  Receive Date: 20110511
  Receipt Date: 20110505
  Transmission Date: 20111010
  Serious: Yes (Hospitalization)
  Sender: FDA-Public Use
  Company Number: GB-ROCHE-774629

PATIENT

DRUGS (3)
  1. OXALIPLATIN [Suspect]
     Dosage: OMITTED CYCLE 9
     Route: 065
     Dates: start: 20101011
  2. FLUOROURACIL [Suspect]
     Dosage: TEMPORARILY INTERRUPTED CURRENTLY ON CYCLE 10
     Route: 065
     Dates: start: 20101011
  3. AVASTIN [Suspect]
     Dosage: TEMPORARILY INTERRUPTED CURRENTLY ON CYCLE 10
     Route: 065
     Dates: start: 20101011

REACTIONS (2)
  - ABDOMINAL PAIN [None]
  - INTESTINAL OBSTRUCTION [None]
